FAERS Safety Report 16569701 (Version 1)
Quarter: 2019Q3

REPORT INFORMATION
  Report Type: Report from Study
  Country: CN (occurrence: CN)
  Receive Date: 20190715
  Receipt Date: 20190715
  Transmission Date: 20191004
  Serious: Yes (Other)
  Sender: FDA-Public Use
  Company Number: CN-ROCHE-2349547

PATIENT

DRUGS (4)
  1. PACLITAXEL. [Suspect]
     Active Substance: PACLITAXEL
     Indication: NON-SMALL CELL LUNG CANCER
     Dosage: FOR 3 HOURS
     Route: 041
  2. PEMETREXED. [Suspect]
     Active Substance: PEMETREXED
     Indication: NON-SMALL CELL LUNG CANCER
     Dosage: 3 WEEKS AS 1 CYCLE
     Route: 041
  3. CARBOPLATIN. [Suspect]
     Active Substance: CARBOPLATIN
     Indication: NON-SMALL CELL LUNG CANCER
     Dosage: FOR 15 TO 30 MIN, 3 WEEKS AS 1 CYCLE
     Route: 042
  4. BEVACIZUMAB. [Suspect]
     Active Substance: BEVACIZUMAB
     Indication: NON-SMALL CELL LUNG CANCER
     Dosage: 3 WEEKS AS 1 CYCLE
     Route: 041

REACTIONS (11)
  - White blood cell count decreased [Unknown]
  - Nausea [Unknown]
  - Hypertension [Unknown]
  - Neutrophil count decreased [Unknown]
  - Pneumonia [Unknown]
  - Platelet count decreased [Unknown]
  - Gastrointestinal perforation [Unknown]
  - Fatigue [Unknown]
  - Anaemia [Unknown]
  - Proteinuria [Unknown]
  - Gastrointestinal haemorrhage [Unknown]
